FAERS Safety Report 8821518 (Version 2)
Quarter: 2012Q4

REPORT INFORMATION
  Report Type: 
  Country: JP (occurrence: JP)
  Receive Date: 20121002
  Receipt Date: 20121105
  Transmission Date: 20130627
  Serious: Yes (Hospitalization, Other)
  Sender: FDA-Public Use
  Company Number: JP-PFIZER INC-2012240692

PATIENT
  Sex: Female

DRUGS (1)
  1. CADUET [Suspect]
     Dosage: UNK
     Route: 048
     Dates: start: 20120829, end: 20120925

REACTIONS (2)
  - Colitis ischaemic [Unknown]
  - Liver disorder [Recovering/Resolving]
